FAERS Safety Report 14931291 (Version 2)
Quarter: 2021Q1

REPORT INFORMATION
  Report Type: Spontaneous
  Country: CA (occurrence: CA)
  Receive Date: 20180524
  Receipt Date: 20210303
  Transmission Date: 20210419
  Serious: Yes (Other)
  Sender: FDA-Public Use
  Company Number: CA-ORION CORPORATION ORION PHARMA-TREX2017-2627

PATIENT
  Sex: Female

DRUGS (1)
  1. METHOTREXATE (TRADE NAME UNKNOWN) [Suspect]
     Active Substance: METHOTREXATE
     Indication: RHEUMATOID ARTHRITIS
     Route: 065
     Dates: start: 2012

REACTIONS (6)
  - Therapeutic response decreased [Unknown]
  - Gingival abscess [Unknown]
  - Gastrointestinal disorder [Unknown]
  - Teeth brittle [Unknown]
  - Tooth abscess [Unknown]
  - Skin plaque [Unknown]
